FAERS Safety Report 4655250-6 (Version None)
Quarter: 2005Q2

REPORT INFORMATION
  Report Type: 
  Country: None (occurrence: None)
  Receive Date: 20050401
  Receipt Date: 20050124
  Transmission Date: 20051028
  Serious: No
  Sender: FDA-Public Use
  Company Number: SU-2005-003055

PATIENT
  Age: 74 Year
  Sex: Male

DRUGS (4)
  1. BENICAR HCT [Suspect]
     Indication: HYPERTENSION
     Dosage: 40.125 MG BID PO
     Route: 048
     Dates: start: 20041126
  2. LIPITOR [Concomitant]
  3. ALPRAZOLAM [Concomitant]
  4. NEXIUM [Concomitant]

REACTIONS (4)
  - DRUG INEFFECTIVE [None]
  - FAECES DISCOLOURED [None]
  - FATIGUE [None]
  - FLATULENCE [None]
